FAERS Safety Report 19802894 (Version 1)
Quarter: 2021Q3

REPORT INFORMATION
  Report Type: Spontaneous
  Country: US (occurrence: US)
  Receive Date: 20210908
  Receipt Date: 20210908
  Transmission Date: 20211014
  Serious: Yes (Other)
  Sender: FDA-Public Use
  Company Number: None

PATIENT
  Sex: Female

DRUGS (10)
  1. OMEGA 3?6?9 1,200 MG [Concomitant]
  2. SINGULAIR [Concomitant]
     Active Substance: MONTELUKAST SODIUM
  3. OXYCODONE [Concomitant]
     Active Substance: OXYCODONE
  4. MELATONIN [Concomitant]
     Active Substance: MELATONIN
  5. JUXTAPID [Suspect]
     Active Substance: LOMITAPIDE MESYLATE
     Indication: TYPE IIA HYPERLIPIDAEMIA
     Route: 048
  6. VITAMIN E 400 IU [Concomitant]
  7. TRIAMTERENE AND HYDROCHLOROTHIAZIDE [Concomitant]
     Active Substance: HYDROCHLOROTHIAZIDE\TRIAMTERENE
  8. CARVEDILOL. [Concomitant]
     Active Substance: CARVEDILOL
  9. AMITRIPTYLINE [Concomitant]
     Active Substance: AMITRIPTYLINE
  10. MOTRIN [Concomitant]
     Active Substance: IBUPROFEN

REACTIONS (2)
  - Diarrhoea [None]
  - Nausea [None]
